FAERS Safety Report 12879488 (Version 1)
Quarter: 2016Q4

REPORT INFORMATION
  Report Type: Spontaneous
  Country: JP (occurrence: JP)
  Receive Date: 20161025
  Receipt Date: 20161025
  Transmission Date: 20170207
  Serious: Yes (Life-Threatening, Other)
  Sender: FDA-Public Use
  Company Number: JP-UCBSA-2016040461

PATIENT
  Age: 54 Year
  Sex: Female
  Weight: 53 kg

DRUGS (11)
  1. LOXONIN [Concomitant]
     Active Substance: LOXOPROFEN SODIUM
     Route: 048
  2. LUNESTA [Concomitant]
     Active Substance: ESZOPICLONE
     Route: 048
  3. CERCINE [Concomitant]
     Active Substance: DIAZEPAM
     Route: 048
  4. AZILSARTAN [Concomitant]
     Active Substance: AZILSARTAN KAMEDOXOMIL
     Route: 048
  5. DOGMATYL [Concomitant]
     Active Substance: SULPIRIDE
     Route: 048
  6. KETOPROFEN. [Concomitant]
     Active Substance: KETOPROFEN
     Route: 062
  7. E KEPPRA [Suspect]
     Active Substance: LEVETIRACETAM
     Indication: EPILEPSY
     Dosage: 500 MG, ONCE DAILY (QD)
     Route: 048
     Dates: start: 20160729, end: 20160930
  8. REFLEX [Concomitant]
     Active Substance: MIRTAZAPINE
     Indication: PROPHYLAXIS
     Route: 048
     Dates: start: 20160908, end: 20161011
  9. LEXAPRO [Concomitant]
     Active Substance: ESCITALOPRAM OXALATE
     Indication: PROPHYLAXIS
     Route: 048
     Dates: start: 20160808, end: 20161011
  10. MAINTATE [Concomitant]
     Active Substance: BISOPROLOL FUMARATE
     Route: 048
  11. NIFEDIPINE. [Concomitant]
     Active Substance: NIFEDIPINE
     Route: 048

REACTIONS (2)
  - Rhabdomyolysis [Recovering/Resolving]
  - Inappropriate schedule of drug administration [Unknown]

NARRATIVE: CASE EVENT DATE: 20160729
